FAERS Safety Report 8036362-6 (Version None)
Quarter: 2012Q1

REPORT INFORMATION
  Report Type: 
  Country: None (occurrence: None)
  Receive Date: 20120111
  Receipt Date: 20120106
  Transmission Date: 20120608
  Serious: Yes (Other)
  Sender: FDA-Public Use
  Company Number: PHEH2011US07070

PATIENT
  Sex: Female

DRUGS (10)
  1. LITHIUM [Concomitant]
     Dosage: UNK UKN, UNK
  2. FOSAMAX [Concomitant]
     Dosage: UNK UKN, UNK
  3. DEPAKOTE [Concomitant]
     Dosage: UNK UKN, UNK
  4. AMPYRA [Concomitant]
     Dosage: UNK UKN, UNK
  5. GILENYA [Suspect]
     Dosage: 0.5 MG, QD
     Route: 048
     Dates: start: 20110912
  6. VITAMIN D [Concomitant]
     Dosage: UNK UKN, UNK
  7. TEMAZEPAM [Concomitant]
     Dosage: UNK UKN, UNK
  8. CALCIUM ACETATE [Concomitant]
     Dosage: UNK UKN, UNK
  9. SYNTHROID [Concomitant]
     Dosage: UNK UKN, UNK
  10. PRIMIDONE [Concomitant]
     Dosage: UNK UKN, UNK

REACTIONS (7)
  - MIGRAINE [None]
  - URINARY TRACT INFECTION [None]
  - WEIGHT DECREASED [None]
  - HYPOAESTHESIA [None]
  - ASTHENIA [None]
  - PARAESTHESIA [None]
  - FEELING ABNORMAL [None]
